FAERS Safety Report 13935897 (Version 1)
Quarter: 2017Q3

REPORT INFORMATION
  Report Type: Spontaneous
  Country: US (occurrence: US)
  Receive Date: 20170903
  Receipt Date: 20170903
  Transmission Date: 20171127
  Serious: Yes (Disabling)
  Sender: FDA-Public Use
  Company Number: None

PATIENT
  Age: 52 Year
  Sex: Male
  Weight: 130.5 kg

DRUGS (11)
  1. VITAMIN B12 [Concomitant]
     Active Substance: CYANOCOBALAMIN
  2. XOPENEX [Concomitant]
     Active Substance: LEVALBUTEROL HYDROCHLORIDE
  3. MULTIVITAMIN [Concomitant]
     Active Substance: VITAMINS
  4. SINGULAIR [Concomitant]
     Active Substance: MONTELUKAST SODIUM
  5. FISH OIL [Concomitant]
     Active Substance: FISH OIL
  6. METOPROLOL SUCC ER [Concomitant]
     Active Substance: METOPROLOL SUCCINATE
  7. AFRIN [Concomitant]
     Active Substance: OXYMETAZOLINE
  8. DOXYCYCLINE HYCLATE 100 MG CAP [Suspect]
     Active Substance: DOXYCYCLINE HYCLATE
     Indication: BRONCHITIS
     Dosage: ?          QUANTITY:20 CAPSULE(S);?
     Route: 048
     Dates: start: 20170825, end: 20170902
  9. FLONASE [Concomitant]
     Active Substance: FLUTICASONE PROPIONATE
  10. ZYRTEC [Concomitant]
     Active Substance: CETIRIZINE HYDROCHLORIDE
  11. OMEPRAZOLE. [Concomitant]
     Active Substance: OMEPRAZOLE

REACTIONS (7)
  - Tendonitis [None]
  - Carpal tunnel syndrome [None]
  - Burning sensation [None]
  - Epicondylitis [None]
  - Musculoskeletal pain [None]
  - Pain in extremity [None]
  - Arthropathy [None]

NARRATIVE: CASE EVENT DATE: 20170901
